FAERS Safety Report 15245420 (Version 4)
Quarter: 2018Q4

REPORT INFORMATION
  Report Type: Spontaneous
  Country: IT (occurrence: IT)
  Receive Date: 20180806
  Receipt Date: 20181026
  Transmission Date: 20190204
  Serious: Yes (Other)
  Sender: FDA-Public Use
  Company Number: IT-SA-2018SA209928

PATIENT
  Age: 38 Year
  Sex: Female
  Weight: 48 kg

DRUGS (3)
  1. COPAXONE [Concomitant]
     Active Substance: GLATIRAMER ACETATE
  2. FINGOLIMOD HCL [Concomitant]
     Active Substance: FINGOLIMOD HYDROCHLORIDE
  3. LEMTRADA [Suspect]
     Active Substance: ALEMTUZUMAB
     Dosage: UNK
     Route: 041
     Dates: start: 201707

REACTIONS (10)
  - Decreased appetite [Not Recovered/Not Resolved]
  - Lymphocyte count decreased [Not Recovered/Not Resolved]
  - B-lymphocyte count decreased [Recovered/Resolved]
  - T-lymphocyte count decreased [Not Recovered/Not Resolved]
  - Amenorrhoea [Not Recovered/Not Resolved]
  - CD4 lymphocytes decreased [Not Recovered/Not Resolved]
  - CD8 lymphocytes decreased [Not Recovered/Not Resolved]
  - Weight increased [Unknown]
  - Neutropenia [Unknown]
  - Weight decreased [Unknown]

NARRATIVE: CASE EVENT DATE: 20180606
